FAERS Safety Report 22055048 (Version 3)
Quarter: 2023Q2

REPORT INFORMATION
  Report Type: Spontaneous
  Country: US (occurrence: US)
  Receive Date: 20230302
  Receipt Date: 20230502
  Transmission Date: 20230721
  Serious: No
  Sender: FDA-Public Use
  Company Number: US-SA-SAC20230301001590

PATIENT
  Age: 25 Year
  Sex: Female

DRUGS (1)
  1. DUPIXENT [Suspect]
     Active Substance: DUPILUMAB
     Indication: Dermatitis atopic
     Dosage: 300 MG, QOW
     Route: 058
     Dates: start: 202301

REACTIONS (8)
  - Joint swelling [Unknown]
  - Ear infection [Unknown]
  - Depression [Unknown]
  - Headache [Unknown]
  - Arthritis [Unknown]
  - Nausea [Unknown]
  - Pruritus [Unknown]
  - Dry eye [Unknown]
